FAERS Safety Report 17566171 (Version 4)
Quarter: 2020Q4

REPORT INFORMATION
  Report Type: Report from Study
  Country: US (occurrence: US)
  Receive Date: 20200320
  Receipt Date: 20201218
  Transmission Date: 20210113
  Serious: Yes (Death, Life-Threatening, Other)
  Sender: FDA-Public Use
  Company Number: NVSC2020US078422

PATIENT
  Age: 14 Year
  Sex: Female

DRUGS (4)
  1. KYMRIAH [Suspect]
     Active Substance: TISAGENLECLEUCEL
     Indication: ACUTE LYMPHOCYTIC LEUKAEMIA
     Dosage: UNK
     Route: 065
     Dates: start: 20190910
  2. CYCLOPHOSPHAMIDE. [Concomitant]
     Active Substance: CYCLOPHOSPHAMIDE
     Indication: CHEMOTHERAPY
     Dosage: UNK
     Route: 065
  3. FLUDARABINE [Concomitant]
     Active Substance: FLUDARABINE PHOSPHATE
     Indication: CHEMOTHERAPY
     Dosage: UNK
     Route: 065
  4. CYTARABINE. [Concomitant]
     Active Substance: CYTARABINE
     Indication: CHEMOTHERAPY
     Dosage: UNK
     Route: 065

REACTIONS (27)
  - Depressed level of consciousness [Unknown]
  - Hypotension [Unknown]
  - Tremor [Unknown]
  - Agitation [Unknown]
  - Headache [Unknown]
  - Hypoxia [Unknown]
  - Pyrexia [Recovered/Resolved]
  - Cellulitis [Unknown]
  - Mucormycosis [Unknown]
  - Aphasia [Unknown]
  - Pulmonary toxicity [Unknown]
  - Cytopenia [Unknown]
  - Thrombocytopenia [Unknown]
  - White blood cell count decreased [Unknown]
  - Gastrointestinal toxicity [Unknown]
  - Treatment failure [Unknown]
  - Sinusitis [Unknown]
  - Neutropenia [Unknown]
  - Cytokine release syndrome [Recovered/Resolved]
  - Pseudomonas infection [Unknown]
  - Fungal infection [Fatal]
  - Cardiotoxicity [Unknown]
  - Neurotoxicity [Recovered/Resolved]
  - Enterococcal infection [Unknown]
  - Status epilepticus [Unknown]
  - Haemoglobin decreased [Unknown]
  - Haematocrit decreased [Unknown]
